FAERS Safety Report 19985568 (Version 2)
Quarter: 2021Q4

REPORT INFORMATION
  Report Type: Spontaneous
  Country: PL (occurrence: PL)
  Receive Date: 20211021
  Receipt Date: 20211213
  Transmission Date: 20220303
  Serious: Yes (Hospitalization, Other)
  Sender: FDA-Public Use
  Company Number: PL-KRKA-PL2021K13241LIT

PATIENT
  Age: 11 Year
  Sex: Male
  Weight: 50 kg

DRUGS (4)
  1. DIAZEPAM [Suspect]
     Active Substance: DIAZEPAM
     Indication: Dystonia
     Dosage: 10 MG
     Route: 065
  2. DIAZEPAM [Suspect]
     Active Substance: DIAZEPAM
     Dosage: 5 MG
     Route: 065
  3. RISPERIDONE [Suspect]
     Active Substance: RISPERIDONE
     Indication: Product used for unknown indication
     Route: 065
  4. RISPERIDONE [Suspect]
     Active Substance: RISPERIDONE
     Route: 048

REACTIONS (4)
  - Parkinsonism [Recovering/Resolving]
  - Neuroleptic malignant syndrome [Recovering/Resolving]
  - Blood pressure decreased [Unknown]
  - Overdose [Unknown]
